FAERS Safety Report 9966940 (Version 2)
Quarter: 2014Q2

REPORT INFORMATION
  Report Type: Spontaneous
  Country: US (occurrence: US)
  Receive Date: 20140305
  Receipt Date: 20140415
  Transmission Date: 20141212
  Serious: Yes (Hospitalization, Other)
  Sender: FDA-Public Use
  Company Number: US-009507513-1403USA000506

PATIENT
  Age: 59 Year
  Sex: Female

DRUGS (14)
  1. PEGINTRON [Suspect]
     Indication: HEPATITIS C VIRUS TEST POSITIVE
     Dosage: UNK, Q7DAYS
     Dates: start: 19930101, end: 20110601
  2. PEGINTRON [Suspect]
     Dosage: UNK, ONCE A WEEK
     Route: 058
     Dates: start: 20120622, end: 20121222
  3. PEGINTRON [Suspect]
     Dosage: 0.5 ML, UNK
     Route: 058
     Dates: start: 20140301
  4. REBETOL [Suspect]
     Indication: HEPATITIS C VIRUS TEST POSITIVE
     Dosage: UNK, BID (TWICE A DAY)
     Route: 048
     Dates: start: 19930101, end: 20110601
  5. REBETOL [Suspect]
     Dosage: UNK, DAILY
     Route: 048
     Dates: start: 20120622, end: 20121222
  6. REBETOL [Suspect]
     Dosage: 600 MG (1 PILL), BID
     Route: 048
     Dates: start: 20140301
  7. INCIVEK [Suspect]
     Indication: HEPATITIS C VIRUS TEST POSITIVE
     Dosage: UNK, TID (THREE TIMES A DAY)
     Route: 048
     Dates: start: 20110101, end: 20110301
  8. INCIVEK [Suspect]
     Dosage: UNK, QD
     Route: 048
  9. SOVALDI [Suspect]
     Dosage: UNK, QD
  10. LEVOTHYROXINE SODIUM [Concomitant]
     Dosage: UNK UNK, QD
     Route: 048
  11. METFORMIN [Concomitant]
     Dosage: UNK UNK, QD
  12. ASPIRIN [Concomitant]
     Dosage: UNK, QD
  13. OMEPRAZOLE [Concomitant]
     Dosage: UNK, QD
  14. PROVENTIL [Concomitant]
     Dosage: 1 TO 2 PUFFS, PRN STRENGHT 6.7 GM/200 METERS

REACTIONS (16)
  - Radical hysterectomy [Unknown]
  - Cervix carcinoma [Unknown]
  - Encephalopathy [Unknown]
  - Liver disorder [Unknown]
  - Gait disturbance [Unknown]
  - Aphasia [Unknown]
  - Confusional state [Unknown]
  - Psychomotor hyperactivity [Unknown]
  - Hepatitis C [Unknown]
  - Weight increased [Unknown]
  - Depression [Unknown]
  - Anaemia [Unknown]
  - Weight decreased [Unknown]
  - Drug ineffective [Unknown]
  - Feeling abnormal [Unknown]
  - Feeling abnormal [Unknown]
